FAERS Safety Report 4409482-2 (Version None)
Quarter: 2004Q3

REPORT INFORMATION
  Report Type: 
  Country: None (occurrence: None)
  Receive Date: 20040723
  Receipt Date: 20040706
  Transmission Date: 20050211
  Serious: Yes (Hospitalization)
  Sender: FDA-Public Use
  Company Number: 2004IC000164

PATIENT
  Sex: Female
  Weight: 64 kg

DRUGS (8)
  1. FLUOROURACIL [Suspect]
     Indication: ANAL CANCER
     Dosage: INTRAVENOUS
     Route: 042
     Dates: start: 20040413, end: 20040511
  2. BRUFEN (GENERIC UNKNOWN) [Suspect]
     Indication: PAIN
     Dosage: TWICE A DAY; ORAL
     Route: 048
     Dates: start: 20040507, end: 20040510
  3. MITOMYCIN [Concomitant]
  4. BENADON [Concomitant]
  5. ACETAMINOPHEN [Concomitant]
  6. PRIMPERAN INJ [Concomitant]
  7. TRAMADOL HCL [Concomitant]
  8. IMODIUM [Concomitant]

REACTIONS (8)
  - EOSINOPHILIA [None]
  - ERYTHEMA MULTIFORME [None]
  - HAEMATURIA [None]
  - HYPERSENSITIVITY [None]
  - LEUKOCYTURIA [None]
  - NEPHRITIS RADIATION [None]
  - PYREXIA [None]
  - TOXIC SKIN ERUPTION [None]
